FAERS Safety Report 21167972 (Version 1)
Quarter: 2022Q3

REPORT INFORMATION
  Report Type: Spontaneous
  Country: JP (occurrence: JP)
  Receive Date: 20220803
  Receipt Date: 20220803
  Transmission Date: 20221027
  Serious: Yes (Other)
  Sender: FDA-Public Use
  Company Number: JP-PFIZER INC-PV202200034852

PATIENT

DRUGS (2)
  1. AMLODIPINE BESYLATE [Suspect]
     Active Substance: AMLODIPINE BESYLATE
     Indication: Blood pressure increased
     Dosage: 5 MG, 2X/DAY (TWO TABLETS(1 TABLET=5MG) IN THE MORNING AND AFTER DINNER)
     Route: 048
  2. AMLODIPINE BESYLATE [Suspect]
     Active Substance: AMLODIPINE BESYLATE
     Dosage: 15 MG (ONE TABLET (5MG) AFTER DINNER AND ONE TABLET (10MG) AFTER BREAKFAST)
     Route: 048

REACTIONS (3)
  - Renal impairment [Unknown]
  - Therapeutic product effect incomplete [Unknown]
  - Off label use [Unknown]
